FAERS Safety Report 16911206 (Version 1)
Quarter: 2019Q4

REPORT INFORMATION
  Report Type: Spontaneous
  Country: HN (occurrence: HN)
  Receive Date: 20190822
  Receipt Date: 20190822
  Transmission Date: 20200122
  Serious: Yes (Other)
  Sender: FDA-Public Use
  Company Number: None

PATIENT
  Age: 25 Year
  Sex: Male
  Weight: 78.75 kg

DRUGS (3)
  1. FLOXA PACK (AMOXICILLIN) [Suspect]
     Active Substance: AMOXICILLIN
  2. FLOXA PACK (LEVOFLOXACIN) [Suspect]
     Active Substance: LEVOFLOXACIN
     Indication: HELICOBACTER INFECTION
     Dosage: ?          QUANTITY:80 CAPSULE(S);?
     Route: 048
     Dates: start: 20190816, end: 20190822
  3. FLOXA PACK (LANSOPRAZOL) [Suspect]
     Active Substance: LANSOPRAZOLE

REACTIONS (4)
  - Burning sensation [None]
  - Anxiety [None]
  - Nervous system disorder [None]
  - Insomnia [None]

NARRATIVE: CASE EVENT DATE: 20190820
